FAERS Safety Report 13084974 (Version 1)
Quarter: 2017Q1

REPORT INFORMATION
  Report Type: Spontaneous
  Country: US (occurrence: US)
  Receive Date: 20170104
  Receipt Date: 20170104
  Transmission Date: 20170428
  Serious: Yes (Other)
  Sender: FDA-Public Use
  Company Number: None

PATIENT
  Age: 15 Year
  Sex: Male

DRUGS (1)
  1. FELBATOL [Suspect]
     Active Substance: FELBAMATE
     Indication: EPILEPSY
     Dosage: FREQUENCY - 1000MG QAM, 800MG NOON, 1000MG QPM
     Route: 048
     Dates: start: 2013

REACTIONS (3)
  - Seizure [None]
  - Condition aggravated [None]
  - Product substitution issue [None]
